FAERS Safety Report 7943566-7 (Version None)
Quarter: 2011Q4

REPORT INFORMATION
  Report Type: 
  Country: None (occurrence: None)
  Receive Date: 20111128
  Receipt Date: 20111118
  Transmission Date: 20120403
  Serious: Yes (Hospitalization, Other)
  Sender: FDA-Public Use
  Company Number: PHHY2011US101820

PATIENT
  Age: 42 Year
  Sex: Female

DRUGS (1)
  1. RIFAMPICIN [Suspect]

REACTIONS (7)
  - HYPOCALCAEMIA [None]
  - ASTHENIA [None]
  - MUSCULOSKELETAL PAIN [None]
  - ABDOMINAL PAIN [None]
  - VITAMIN D DECREASED [None]
  - ELECTROCARDIOGRAM QT PROLONGED [None]
  - FATIGUE [None]
